FAERS Safety Report 8955277 (Version 1)
Quarter: 2012Q4

REPORT INFORMATION
  Report Type: 
  Country: US (occurrence: US)
  Receive Date: 20121210
  Receipt Date: 20121210
  Transmission Date: 20130627
  Serious: No
  Sender: FDA-Public Use
  Company Number: US-PFIZER INC-2012308372

PATIENT
  Age: 29 Year
  Sex: Male
  Weight: 90.7 kg

DRUGS (3)
  1. GEODON [Suspect]
     Indication: BIPOLAR DISORDER
     Dosage: 80 mg, 1x/day (at night)
     Route: 048
     Dates: start: 2012, end: 20121010
  2. GEODON [Suspect]
     Indication: PARANOIA
     Dosage: UNK mg, 1x/day
     Route: 048
     Dates: start: 20121203
  3. LITHIUM [Concomitant]
     Dosage: 1200 mg, 1x/day (Daily)

REACTIONS (2)
  - Somnolence [Recovered/Resolved]
  - Drug ineffective [Not Recovered/Not Resolved]
